FAERS Safety Report 6009111-0 (Version None)
Quarter: 2008Q4

REPORT INFORMATION
  Report Type: 
  Country: None (occurrence: None)
  Receive Date: 20081216
  Receipt Date: 20081204
  Transmission Date: 20090506
  Serious: Yes (Other)
  Sender: FDA-Public Use
  Company Number: A-CH2008-22963

PATIENT
  Age: 62 Year
  Sex: Female
  Weight: 60.5 kg

DRUGS (6)
  1. TRACLEER [Suspect]
     Indication: SCLERODERMA
     Dosage: 62.5 MG, BID, ORAL
     Route: 048
     Dates: start: 20081113, end: 20081130
  2. LYRICA [Suspect]
  3. CALCORT (DEFALZACORT) [Concomitant]
  4. DILTIAZEM [Concomitant]
  5. COVERSUM (PERINDOPRIL) [Concomitant]
  6. ACTIVELLE (NORETHISTERONE, ESTRADIOL) [Concomitant]

REACTIONS (8)
  - ACUTE RESPIRATORY DISTRESS SYNDROME [None]
  - C-REACTIVE PROTEIN INCREASED [None]
  - LEUKAEMOID REACTION [None]
  - MYELODYSPLASTIC SYNDROME [None]
  - OEDEMA PERIPHERAL [None]
  - PLEURAL EFFUSION [None]
  - PNEUMONIA [None]
  - RASH MACULO-PAPULAR [None]
